FAERS Safety Report 20838624 (Version 1)
Quarter: 2022Q2

REPORT INFORMATION
  Report Type: Spontaneous
  Country: US (occurrence: US)
  Receive Date: 20220517
  Receipt Date: 20220517
  Transmission Date: 20220720
  Serious: Yes (Other)
  Sender: FDA-Public Use
  Company Number: US-SA-SAC20220516001162

PATIENT
  Sex: Female

DRUGS (18)
  1. DUPIXENT [Suspect]
     Active Substance: DUPILUMAB
     Indication: Asthma
     Route: 058
  2. POTASSIUM [Concomitant]
     Active Substance: POTASSIUM
  3. LORAZEPAM [Concomitant]
     Active Substance: LORAZEPAM
  4. BUPROPION HYDROCHLORIDE [Concomitant]
     Active Substance: BUPROPION HYDROCHLORIDE
     Dosage: 100MG
  5. FLUVOXAMINE MALEATE [Concomitant]
     Active Substance: FLUVOXAMINE MALEATE
     Dosage: 50MG
  6. CABERGOLINE [Concomitant]
     Active Substance: CABERGOLINE
     Dosage: 0.5MG
  7. IPRATROPIUM BROMIDE [Concomitant]
     Active Substance: IPRATROPIUM BROMIDE
  8. PREDNISONE [Concomitant]
     Active Substance: PREDNISONE
  9. ALBUTEROL SULFATE [Concomitant]
     Active Substance: ALBUTEROL SULFATE
  10. TRELEGY ELLIPTA [Concomitant]
     Active Substance: FLUTICASONE FUROATE\UMECLIDINIUM BROMIDE\VILANTEROL TRIFENATATE
  11. GABAPENTIN [Concomitant]
     Active Substance: GABAPENTIN
  12. TRAZODONE HCL [Concomitant]
     Active Substance: TRAZODONE HYDROCHLORIDE
     Dosage: 100MG
  13. ABILIFY [Concomitant]
     Active Substance: ARIPIPRAZOLE
     Dosage: 5MG
  14. SINGULAIR [Concomitant]
     Active Substance: MONTELUKAST SODIUM
     Dosage: 10MG
  15. ROBAXIN [Concomitant]
     Active Substance: METHOCARBAMOL
     Dosage: 100MG/ML
  16. SYNTHROID [Concomitant]
     Active Substance: LEVOTHYROXINE SODIUM
     Dosage: 88MCG
  17. LASIX [Concomitant]
     Active Substance: FUROSEMIDE
     Dosage: 20MG
  18. ELIQUIS [Concomitant]
     Active Substance: APIXABAN
     Dosage: 5MG

REACTIONS (4)
  - Thrombosis [Unknown]
  - Pain [Unknown]
  - Swelling [Unknown]
  - Skin discolouration [Unknown]
